FAERS Safety Report 9701230 (Version 1)
Quarter: 2013Q4

REPORT INFORMATION
  Report Type: Spontaneous
  Country: US (occurrence: US)
  Receive Date: 20131121
  Receipt Date: 20131121
  Transmission Date: 20140711
  Serious: Yes (Other)
  Sender: FDA-Public Use
  Company Number: US-BAYER-2013-140180

PATIENT
  Sex: Female

DRUGS (1)
  1. MIRENA [Suspect]
     Dosage: 20 MCG/24HR, CONT
     Route: 015
     Dates: start: 20130902

REACTIONS (6)
  - Medication error [None]
  - Post procedural haemorrhage [None]
  - Vaginal discharge [None]
  - Genital haemorrhage [None]
  - Back pain [None]
  - Menstruation delayed [None]
